FAERS Safety Report 5730074-7 (Version None)
Quarter: 2008Q2

REPORT INFORMATION
  Report Type: 
  Country: None (occurrence: None)
  Receive Date: 20080506
  Receipt Date: 20080506
  Transmission Date: 20081010
  Serious: Yes (Death)
  Sender: FDA-Public Use
  Company Number: None

PATIENT
  Sex: Male
  Weight: 63 kg

DRUGS (2)
  1. RATG [Suspect]
     Indication: MYELOMA RECURRENCE
     Dosage: TOTAL 6 MG/KG DAILY X 4 DAYS IV
     Route: 042
     Dates: start: 20080211, end: 20080214
  2. RAPAMYCIN [Suspect]
     Indication: MYELOMA RECURRENCE
     Dosage: 1 MG DAILY PO
     Route: 048
     Dates: start: 20080211, end: 20080311

REACTIONS (3)
  - CARDIAC ARREST [None]
  - PULSE ABSENT [None]
  - UNRESPONSIVE TO STIMULI [None]
